FAERS Safety Report 8828019 (Version 3)
Quarter: 2012Q4

REPORT INFORMATION
  Report Type: 
  Country: IT (occurrence: IT)
  Receive Date: 20121008
  Receipt Date: 20121015
  Transmission Date: 20130627
  Serious: Yes (Hospitalization, Other)
  Sender: FDA-Public Use
  Company Number: PHHY2012IT084793

PATIENT

DRUGS (3)
  1. SANDOSTATINA LAR [Suspect]
     Dosage: 30 mg, every 28 days
     Route: 030
     Dates: start: 20120806
  2. SANDOSTATINA LAR [Suspect]
     Dosage: 30 mg, every 28 days
     Route: 030
     Dates: start: 20120903
  3. SANDOSTATINA LAR [Suspect]
     Dosage: 30 mg, every 28 days
     Route: 030

REACTIONS (7)
  - Arteriospasm coronary [Recovering/Resolving]
  - Syncope [Unknown]
  - Chest pain [Unknown]
  - Hypotension [Unknown]
  - Troponin increased [Unknown]
  - Anxiety disorder [Unknown]
  - Insomnia [Unknown]
